FAERS Safety Report 6290547-8 (Version None)
Quarter: 2009Q3

REPORT INFORMATION
  Report Type: 
  Country: None (occurrence: None)
  Receive Date: 20090728
  Receipt Date: 20090728
  Transmission Date: 20100115
  Serious: Yes (Other)
  Sender: FDA-Public Use
  Company Number: None

PATIENT
  Age: 35 Year
  Sex: Female
  Weight: 117.9352 kg

DRUGS (1)
  1. DORIBAX [Suspect]
     Indication: KIDNEY INFECTION
     Dosage: 500MG EVERY 8 HOURS IV
     Route: 042
     Dates: start: 20090617, end: 20090623

REACTIONS (1)
  - INFUSION SITE RASH [None]
